FAERS Safety Report 11386030 (Version 1)
Quarter: 2015Q3

REPORT INFORMATION
  Report Type: Spontaneous
  Country: US (occurrence: None)
  Receive Date: 20150813
  Receipt Date: 20150813
  Transmission Date: 20151125
  Serious: Yes (Hospitalization)
  Sender: FDA-Public Use
  Company Number: None

PATIENT
  Age: 57 Year
  Sex: Female
  Weight: 58 kg

DRUGS (2)
  1. ETOPOSIDE (VP-16) [Suspect]
     Active Substance: ETOPOSIDE
     Dates: end: 20150522
  2. CISPLATIN. [Suspect]
     Active Substance: CISPLATIN
     Dates: end: 20150520

REACTIONS (5)
  - Dehydration [None]
  - Fatigue [None]
  - Urinary tract infection [None]
  - Oesophagitis [None]
  - Febrile neutropenia [None]

NARRATIVE: CASE EVENT DATE: 20150527
